FAERS Safety Report 22987063 (Version 3)
Quarter: 2023Q4

REPORT INFORMATION
  Report Type: Spontaneous
  Country: US (occurrence: US)
  Receive Date: 20230926
  Receipt Date: 20231221
  Transmission Date: 20240110
  Serious: No
  Sender: FDA-Public Use
  Company Number: US-MLMSERVICE-20230831-4523796-1

PATIENT
  Age: 66 Year
  Sex: Female

DRUGS (11)
  1. LIDOCAINE [Suspect]
     Active Substance: LIDOCAINE
     Indication: Cancer pain
     Dosage: 2 MG/KG QH LOW DOSE
     Route: 042
  2. LIDOCAINE [Suspect]
     Active Substance: LIDOCAINE
     Indication: Chest pain
     Dosage: 1 MG/KG QH LOW DOSE
     Route: 042
  3. HYDROMORPHONE [Concomitant]
     Active Substance: HYDROMORPHONE
     Indication: Cancer pain
     Dosage: LOW-DOSE, AS-NEEDED
     Route: 042
  4. HYDROMORPHONE [Concomitant]
     Active Substance: HYDROMORPHONE
     Indication: Analgesic therapy
     Dosage: UNK
     Route: 065
  5. MORPHINE [Concomitant]
     Active Substance: MORPHINE
     Indication: Cancer pain
     Route: 042
  6. MORPHINE [Concomitant]
     Active Substance: MORPHINE
     Indication: Analgesic therapy
     Dosage: 45-60 MG
     Route: 065
  7. MORPHINE [Concomitant]
     Active Substance: MORPHINE
     Route: 048
  8. FENTANYL [Concomitant]
     Active Substance: FENTANYL\FENTANYL CITRATE
     Indication: Cancer pain
     Route: 062
  9. FENTANYL [Concomitant]
     Active Substance: FENTANYL\FENTANYL CITRATE
     Indication: Analgesic therapy
     Dosage: LOW-DOSE, AS-NEEDED
     Route: 042
  10. BUPIVACAINE [Concomitant]
     Active Substance: BUPIVACAINE
     Indication: Cancer pain
     Dosage: BUPIVACAINE 0.1% AT 5 ML PER HOUR WITH A 4 ML BOLUS AVAILABLE EVERY 30 MINUTES
     Route: 008
  11. BUPIVACAINE [Concomitant]
     Active Substance: BUPIVACAINE
     Indication: Analgesic therapy
     Dosage: BUPIVACAINE 0.1% AT 7 ML PER HOUR WITH A 5ML BOLUS AVAILABLE EVERY 30 MINUTES
     Route: 008

REACTIONS (2)
  - Chest pain [Unknown]
  - Nausea [Unknown]
